FAERS Safety Report 13699860 (Version 1)
Quarter: 2017Q2

REPORT INFORMATION
  Report Type: Spontaneous
  Country: AT (occurrence: AT)
  Receive Date: 20170629
  Receipt Date: 20170629
  Transmission Date: 20170830
  Serious: Yes (Other)
  Sender: FDA-Public Use
  Company Number: AT-ASTRAZENECA-2017SE66610

PATIENT
  Age: 34 Year
  Sex: Male

DRUGS (10)
  1. PREGABALIN. [Suspect]
     Active Substance: PREGABALIN
     Dosage: 1200.0MG UNKNOWN
     Route: 065
     Dates: start: 20170125
  2. PREGABALIN. [Suspect]
     Active Substance: PREGABALIN
     Dosage: 900.0MG UNKNOWN
     Route: 065
     Dates: start: 201601, end: 20170123
  3. OLANZAPINE. [Suspect]
     Active Substance: OLANZAPINE
     Dosage: 5.0MG UNKNOWN
     Route: 065
     Dates: start: 20170127, end: 20170130
  4. QUETIAPINE. [Suspect]
     Active Substance: QUETIAPINE
     Dosage: 400.0MG UNKNOWN
     Route: 048
     Dates: start: 201604
  5. OLANZAPINE. [Suspect]
     Active Substance: OLANZAPINE
     Dosage: 2.5MG UNKNOWN
     Route: 065
     Dates: start: 20170131
  6. QUETIAPINE. [Suspect]
     Active Substance: QUETIAPINE
     Dosage: 200.0MG UNKNOWN
     Route: 048
     Dates: start: 20170124
  7. SERTRALINE [Suspect]
     Active Substance: SERTRALINE HYDROCHLORIDE
     Dosage: 200.0MG UNKNOWN
     Route: 065
     Dates: start: 2015
  8. SERTRALINE [Suspect]
     Active Substance: SERTRALINE HYDROCHLORIDE
     Dosage: 200.0MG UNKNOWN
     Route: 065
     Dates: start: 201601
  9. OLANZAPINE. [Suspect]
     Active Substance: OLANZAPINE
     Dosage: 10.0MG UNKNOWN
     Route: 065
     Dates: start: 201604, end: 20170126
  10. PREGABALIN. [Suspect]
     Active Substance: PREGABALIN
     Dosage: 600.0MG UNKNOWN
     Route: 065
     Dates: start: 20170124, end: 20170124

REACTIONS (2)
  - Weight increased [Not Recovered/Not Resolved]
  - Fatigue [Unknown]

NARRATIVE: CASE EVENT DATE: 201601
